FAERS Safety Report 5055348-7 (Version None)
Quarter: 2006Q3

REPORT INFORMATION
  Report Type: 
  Country: None (occurrence: None)
  Receive Date: 20060718
  Receipt Date: 20060718
  Transmission Date: 20061208
  Serious: Yes (Hospitalization)
  Sender: FDA-Public Use
  Company Number: None

PATIENT
  Age: 57 Year
  Sex: Male

DRUGS (7)
  1. FUROSEMIDE [Suspect]
     Indication: HYPERTENSION
     Dosage: 40 MG QD
     Dates: start: 19950301
  2. PLAVIX [Concomitant]
  3. BACLOFEN [Concomitant]
  4. LORTAB [Concomitant]
  5. DIAZEPAM [Concomitant]
  6. ZOCOR [Concomitant]
  7. GABAPENTIN [Concomitant]

REACTIONS (1)
  - ORTHOSTATIC HYPOTENSION [None]
